FAERS Safety Report 10308567 (Version 3)
Quarter: 2015Q2

REPORT INFORMATION
  Report Type: Spontaneous
  Country: US (occurrence: US)
  Receive Date: 20140716
  Receipt Date: 20150605
  Transmission Date: 20150821
  Serious: Yes (Hospitalization, Other)
  Sender: FDA-Public Use
  Company Number: US-GLAXOSMITHKLINE-A1080911A

PATIENT
  Age: 74 Year
  Sex: Male

DRUGS (3)
  1. GLIPIZIDE. [Concomitant]
     Active Substance: GLIPIZIDE
  2. SORIATANE [Suspect]
     Active Substance: ACITRETIN
     Dosage: 25 MG PER DAY
     Route: 048
     Dates: start: 2013, end: 2014
  3. SORIATANE [Suspect]
     Active Substance: ACITRETIN
     Indication: PSORIASIS
     Dosage: 25 MG, UNK
     Dates: start: 2011

REACTIONS (10)
  - Cardioversion [Recovered/Resolved]
  - Surgery [Unknown]
  - Back pain [Not Recovered/Not Resolved]
  - Cardiac fibrillation [Recovered/Resolved]
  - Arthralgia [Recovered/Resolved]
  - Drug dose omission [Unknown]
  - Influenza [Unknown]
  - Knee arthroplasty [Recovered/Resolved]
  - Cholecystectomy [Unknown]
  - Squamous cell carcinoma [Unknown]

NARRATIVE: CASE EVENT DATE: 201305
